FAERS Safety Report 11441477 (Version 2)
Quarter: 2015Q3

REPORT INFORMATION
  Report Type: Spontaneous
  Country: US (occurrence: US)
  Receive Date: 20150821
  Receipt Date: 20150831
  Transmission Date: 20151125
  Serious: No
  Sender: FDA-Public Use
  Company Number: US-ELI_LILLY_AND_COMPANY-US200807004975

PATIENT
  Sex: Female

DRUGS (4)
  1. CYMBALTA [Suspect]
     Active Substance: DULOXETINE HYDROCHLORIDE
     Dosage: 30 MG, UNK
     Dates: start: 2008
  2. ULTRAM [Concomitant]
     Active Substance: TRAMADOL HYDROCHLORIDE
  3. CYMBALTA [Suspect]
     Active Substance: DULOXETINE HYDROCHLORIDE
     Indication: COMPLEX REGIONAL PAIN SYNDROME
     Dosage: 30 MG, UNK
     Dates: start: 2004, end: 200807
  4. ANESTHETICS, LOCAL [Concomitant]
     Active Substance: UNSPECIFIED INGREDIENT
     Route: 050

REACTIONS (6)
  - Pain in extremity [Recovered/Resolved]
  - Pain [Recovered/Resolved]
  - Drug withdrawal syndrome [Recovered/Resolved]
  - Burning sensation [Recovered/Resolved]
  - Peripheral swelling [Unknown]
  - Exostosis [Unknown]

NARRATIVE: CASE EVENT DATE: 2008
